FAERS Safety Report 13637766 (Version 1)
Quarter: 2017Q2

REPORT INFORMATION
  Report Type: Spontaneous
  Country: ZA (occurrence: ZA)
  Receive Date: 20170609
  Receipt Date: 20170609
  Transmission Date: 20170830
  Serious: Yes (Death)
  Sender: FDA-Public Use
  Company Number: ZA-PFIZER INC-2017252838

PATIENT
  Age: 77 Year
  Sex: Male

DRUGS (9)
  1. WARFARIN [Concomitant]
     Active Substance: WARFARIN
     Dosage: UNK
  2. LYRICA [Concomitant]
     Active Substance: PREGABALIN
     Dosage: 75 MG, 2X/DAY
  3. ZYVOXID [Suspect]
     Active Substance: LINEZOLID
     Dosage: 600 MG, 2X/DAY
     Route: 042
  4. GLAMARYL [Concomitant]
     Dosage: 1 MG, DAILY
  5. ASPAVOR [Concomitant]
     Active Substance: ATORVASTATIN
     Dosage: UNK, DAILY
  6. PREXUM [Concomitant]
     Active Substance: PERINDOPRIL ERBUMINE
     Dosage: 4 MG, DAILY
  7. RIDAQ [Concomitant]
     Active Substance: HYDROCHLOROTHIAZIDE
     Dosage: 25 MG, DAILY
  8. ARYCOR [Concomitant]
     Active Substance: AMIODARONE HYDROCHLORIDE
     Dosage: 200 MG, DAILY
  9. PURGOXIN [Concomitant]
     Active Substance: DIGOXIN
     Dosage: 0.25 MG, DAILY

REACTIONS (1)
  - Death [Fatal]
